FAERS Safety Report 4725126-4 (Version None)
Quarter: 2005Q3

REPORT INFORMATION
  Report Type: 
  Country: None (occurrence: None)
  Receive Date: 20050726
  Receipt Date: 20050711
  Transmission Date: 20060218
  Serious: Yes (Other)
  Sender: FDA-Public Use
  Company Number: 2005AP000571

PATIENT
  Age: 39 Year
  Sex: Female

DRUGS (5)
  1. APO-FLUVOXAMINE (FLUVOXAMINE MALEATE) [Suspect]
     Indication: MAJOR DEPRESSION
     Dosage: 150 MG; QD
  2. CITALOPRAM HYDROBROMIDE [Suspect]
     Indication: MAJOR DEPRESSION
     Dosage: 10 MG; QD
  3. CITALOPRAM HYDROBROMIDE [Suspect]
     Indication: POST-TRAUMATIC STRESS DISORDER
     Dosage: 10 MG; QD
  4. CLONAZEPAM [Concomitant]
  5. OLANZAPINE [Concomitant]

REACTIONS (16)
  - ABDOMINAL PAIN UPPER [None]
  - ALANINE AMINOTRANSFERASE INCREASED [None]
  - ANOREXIA [None]
  - ANXIETY [None]
  - ASPARTATE AMINOTRANSFERASE INCREASED [None]
  - BILIARY TRACT DISORDER [None]
  - CATATONIA [None]
  - CHOLESTASIS [None]
  - CYTOLYTIC HEPATITIS [None]
  - DEPRESSION [None]
  - DIALYSIS [None]
  - DRUG INEFFECTIVE [None]
  - MUTISM [None]
  - PARANOIA [None]
  - RENAL TUBULAR NECROSIS [None]
  - TREATMENT NONCOMPLIANCE [None]
